FAERS Safety Report 4616491-7 (Version None)
Quarter: 2005Q1

REPORT INFORMATION
  Report Type: 
  Country: None (occurrence: None)
  Receive Date: 20050318
  Receipt Date: 20050309
  Transmission Date: 20050727
  Serious: Yes (Other)
  Sender: FDA-Public Use
  Company Number: 2005043785

PATIENT
  Age: 68 Year
  Sex: Female
  Weight: 57.6068 kg

DRUGS (9)
  1. ZYRTEC [Suspect]
     Indication: ALLERGIC SINUSITIS
     Dosage: 10 MG (10 MG, 1 IN 1 D), ORAL
     Route: 048
     Dates: start: 20020419, end: 20020101
  2. ZYRTEC [Suspect]
     Indication: POLYP
     Dosage: 10 MG (10 MG, 1 IN 1 D), ORAL
     Route: 048
     Dates: start: 20020419, end: 20020101
  3. ZYRTEC [Suspect]
     Indication: SINUSITIS
     Dosage: 10 MG (10 MG, 1 IN 1 D), ORAL
     Route: 048
     Dates: start: 20020419, end: 20020101
  4. ZITHROMAX [Suspect]
     Indication: SINUSITIS
     Dosage: ORAL
     Route: 048
     Dates: start: 20020101, end: 20020101
  5. MONTELUKAST SODIUM (MONTELUKAST SODIUM) [Suspect]
     Indication: ASTHMA
     Dates: end: 20040901
  6. TRIAMCINOLONE ACETONIDE [Suspect]
     Indication: ASTHMA
     Route: 055
     Dates: end: 20040901
  7. BUDESONIDE [Suspect]
     Indication: ILL-DEFINED DISORDER
     Dates: start: 20020214, end: 20040901
  8. PREDNISONE [Suspect]
     Indication: GLAUCOMA
  9. CARDIZEM [Concomitant]

REACTIONS (9)
  - DRUG INEFFECTIVE [None]
  - DRUG INTERACTION [None]
  - DRY THROAT [None]
  - GLAUCOMA [None]
  - PROCEDURAL COMPLICATION [None]
  - RASH [None]
  - SINUS CONGESTION [None]
  - SINUS DISORDER [None]
  - TACHYCARDIA [None]
